FAERS Safety Report 15884119 (Version 2)
Quarter: 2019Q1

REPORT INFORMATION
  Report Type: Spontaneous
  Country: AR (occurrence: AR)
  Receive Date: 20190129
  Receipt Date: 20190209
  Transmission Date: 20190417
  Serious: Yes (Death, Hospitalization, Other)
  Sender: FDA-Public Use
  Company Number: AR-ROCHE-2252801

PATIENT
  Age: 54 Year
  Sex: Female
  Weight: 88 kg

DRUGS (9)
  1. LEVOTHYROXINE. [Concomitant]
     Active Substance: LEVOTHYROXINE
     Indication: THYROID CANCER
  2. ACTEMRA [Suspect]
     Active Substance: TOCILIZUMAB
     Indication: STILL^S DISEASE
     Route: 058
     Dates: start: 201809, end: 201901
  3. MEPREDNISONE [Concomitant]
     Active Substance: MEPREDNISONE
     Indication: STILL^S DISEASE
     Route: 048
     Dates: start: 201801, end: 20190121
  4. IBANDRONATE [Concomitant]
     Active Substance: IBANDRONATE SODIUM
     Indication: OSTEOPENIA
     Route: 048
     Dates: start: 201809, end: 201812
  5. METHOTREXATE. [Concomitant]
     Active Substance: METHOTREXATE
     Indication: STILL^S DISEASE
     Route: 058
     Dates: start: 201801, end: 201901
  6. URSODEOXYCHOLIC ACID [Concomitant]
     Active Substance: URSODIOL
     Indication: PRIMARY BILIARY CHOLANGITIS
     Route: 048
     Dates: end: 20190121
  7. VITAMIN D3 [Concomitant]
     Active Substance: CHOLECALCIFEROL
     Indication: OSTEOPENIA
     Dosage: 1500 MG/ 400 UI
     Route: 048
     Dates: start: 201801, end: 20180108
  8. LEVOTHYROXINE. [Concomitant]
     Active Substance: LEVOTHYROXINE
     Indication: POST PROCEDURAL HYPOTHYROIDISM
     Route: 048
     Dates: end: 20190121
  9. NAPROXEN. [Concomitant]
     Active Substance: NAPROXEN
     Dosage: IF IT IS NECESSARY (SOS)
     Route: 048

REACTIONS (6)
  - Cerebral haemorrhage [Unknown]
  - Cerebral vasoconstriction [Unknown]
  - Off label use [Unknown]
  - Cerebral ischaemia [Unknown]
  - Intentional product use issue [Unknown]
  - Subarachnoid haemorrhage [Fatal]
